FAERS Safety Report 25330052 (Version 3)
Quarter: 2025Q4

REPORT INFORMATION
  Report Type: Spontaneous
  Country: EU (occurrence: EU)
  Receive Date: 20250519
  Receipt Date: 20251009
  Transmission Date: 20260117
  Serious: Yes (Life-Threatening, Hospitalization, Other)
  Sender: SANDOZ
  Company Number: EU-PFIZER INC-202500091750

PATIENT
  Age: 4 Year
  Sex: Female

DRUGS (64)
  1. MERCAPTOPURINE [Suspect]
     Active Substance: MERCAPTOPURINE
     Dosage: 100 MG/M2 DAY 1-5 OF WEEK 13, 19 AND 25
     Route: 048
  2. MERCAPTOPURINE [Suspect]
     Active Substance: MERCAPTOPURINE
     Indication: Acute lymphocytic leukaemia
     Dosage: 25 MG/M2, 1X/DAY DAY 1-56
     Route: 048
  3. MERCAPTOPURINE [Suspect]
     Active Substance: MERCAPTOPURINE
     Dosage: 50 MG/M2, 1X/DAY
     Route: 048
  4. MERCAPTOPURINE [Suspect]
     Active Substance: MERCAPTOPURINE
     Indication: Leukaemia recurrent
     Dosage: 60 MG/M2/DAY P.O (DAYS 36-49) CONSOLIDATION A
     Route: 048
  5. MERCAPTOPURINE [Suspect]
     Active Substance: MERCAPTOPURINE
     Dosage: 60 MG/M2/DAY P.O (DAYS 50-63) CONSOLIDATION BSHORT
     Route: 048
  6. CYCLOPHOSPHAMIDE [Suspect]
     Active Substance: CYCLOPHOSPHAMIDE
     Indication: Leukaemia recurrent
     Dosage: 1000 MG/M2 DAY 36 (CYCLIC)
     Route: 065
  7. CYCLOPHOSPHAMIDE [Suspect]
     Active Substance: CYCLOPHOSPHAMIDE
     Indication: Acute lymphocytic leukaemia
     Dosage: 1000 MG/M2/DOSE P.I. (1 H) (DAYS 50 AND 64) CONSOLIDATION BSHORT (CYCLIC)
     Route: 065
  8. CYTARABINE [Suspect]
     Active Substance: CYTARABINE
     Dosage: 2 G/M2 I.V. EVERY 12 HOURS, DAY 5 OF WEEK 13, 19, AND 25
     Route: 065
  9. CYTARABINE [Suspect]
     Active Substance: CYTARABINE
     Dosage: 30 MG DAY 1 OF WEEK 13, 19 AND 25 (CYCLIC)
     Route: 065
  10. CYTARABINE [Suspect]
     Active Substance: CYTARABINE
     Dosage: 30 MG DAY 1 OF WEEK 5-7 (CYCLIC)
     Route: 065
  11. CYTARABINE [Suspect]
     Active Substance: CYTARABINE
     Dosage: 75 MG/M2 DAY 3-6 OF WEEK 9 AND 10 (CYCLIC)
     Route: 065
  12. CYTARABINE [Suspect]
     Active Substance: CYTARABINE
     Dosage: 75 MG/M2 DAY 3-6 OF WEEK 9 AND 10 (CYCLIC)
     Route: 065
  13. CYTARABINE [Suspect]
     Active Substance: CYTARABINE
     Indication: Leukaemia recurrent
     Dosage: 75 MG/M2, DAYS 52-55 AND 59-62 (CYCLIC)
     Route: 065
  14. CYTARABINE [Suspect]
     Active Substance: CYTARABINE
     Dosage: 75 MG/M2, DAYS 52-55 AND 59-62 (CYCLIC)
     Route: 065
  15. CYTARABINE [Suspect]
     Active Substance: CYTARABINE
     Dosage: 2G/M2 Q12 HOURS DAY 5 OF WEEK 13, 19, AND 25 (CYCLIC)
     Route: 065
  16. CYTARABINE [Suspect]
     Active Substance: CYTARABINE
     Dosage: 3 G/M2 Q12 HOURS DAY 1 AND 2 OF WEEK 3 (CYCLIC)
     Route: 065
  17. CYTARABINE [Suspect]
     Active Substance: CYTARABINE
     Indication: Acute lymphocytic leukaemia
     Dosage: 30 MG DAY 1 AND 6 OF WEEK 1, DAY 5 OF WEEK 3  (CYCLIC)
     Route: 065
  18. CYTARABINE [Suspect]
     Active Substance: CYTARABINE
     Dosage: 30 MG DAY 1 OF WEEK 5-7 (CYCLIC)
     Route: 065
  19. CYTARABINE [Suspect]
     Active Substance: CYTARABINE
     Dosage: 30 MG DAY 3 OF WEEK 9-10 (CYCLIC)
     Route: 065
  20. DECADRON (DEXAMETHASONE SODIUM PHOSPHATE) [Suspect]
     Active Substance: DEXAMETHASONE SODIUM PHOSPHATE
     Dosage: 0.75 MG/M2 ON DAY 7 OF WEEK 7 AND DAY 1-2 OF WEEK 8
     Route: 048
  21. DECADRON (DEXAMETHASONE SODIUM PHOSPHATE) [Suspect]
     Active Substance: DEXAMETHASONE SODIUM PHOSPHATE
     Dosage: 1.5 MG/M2 ON DAY 4-6 OF WEEK 7
     Route: 048
  22. DECADRON (DEXAMETHASONE SODIUM PHOSPHATE) [Suspect]
     Active Substance: DEXAMETHASONE SODIUM PHOSPHATE
     Indication: Leukaemia recurrent
     Dosage: 10 MG/M2, 1X/DAY DIVIDED INTO 3 DOSES /DAY
     Route: 048
  23. DECADRON (DEXAMETHASONE SODIUM PHOSPHATE) [Suspect]
     Active Substance: DEXAMETHASONE SODIUM PHOSPHATE
     Dosage: 20 MG/M2 P.O., DIVIDED IN 2 DAILY DOSES - DAY 1-5, AND 10 MG/M2 ON DAY 6 OF WEEK 13, 19 AND 25
     Route: 048
  24. DECADRON (DEXAMETHASONE SODIUM PHOSPHATE) [Suspect]
     Active Substance: DEXAMETHASONE SODIUM PHOSPHATE
     Indication: Acute lymphocytic leukaemia
     Dosage: 20 MG/M2 DIVIDED IN 2 DAILY DOSES DAY 1- 5 OF WEEK 1 AND 3
     Route: 048
  25. DECADRON (DEXAMETHASONE SODIUM PHOSPHATE) [Suspect]
     Active Substance: DEXAMETHASONE SODIUM PHOSPHATE
     Dosage: 6 MG/M2 DIVIDED IN 2 DAILY DOSES ON DAY 1-7 OF WEEK 5 AND 6 (TAPERING THE DOSE TO 3 MG/M? ON DAY 1-3
     Route: 048
  26. DOXORUBICIN HYDROCHLORIDE [Suspect]
     Active Substance: DOXORUBICIN HYDROCHLORIDE
     Indication: Leukaemia recurrent
     Dosage: 30 MG/M2 DAYS 8, 15, 22 AND 29 (CYCLIC)
     Route: 065
  27. DOXORUBICIN HYDROCHLORIDE [Suspect]
     Active Substance: DOXORUBICIN HYDROCHLORIDE
     Indication: Acute lymphocytic leukaemia
  28. DAUNORUBICIN [Suspect]
     Active Substance: DAUNORUBICIN
     Indication: Leukaemia recurrent
     Dosage: 30 MG/M2/DOSE P.I. (1 H) (DAYS 8, 15, 22 AND 29)INDUCTION PHASE (CYCLIC)
     Route: 065
  29. DAUNORUBICIN [Suspect]
     Active Substance: DAUNORUBICIN
     Indication: Acute lymphocytic leukaemia
  30. IDARUBICIN HYDROCHLORIDE [Suspect]
     Active Substance: IDARUBICIN HYDROCHLORIDE
     Indication: Leukaemia recurrent
     Dosage: 6 MG/M2 DAY 1 OF WEEK 5-8 (CYCLIC)
     Route: 042
  31. METHOTREXATE [Suspect]
     Active Substance: METHOTREXATE
     Indication: Acute lymphocytic leukaemia
     Dosage: 10 MG DAY 1, 12, 33 (CYCLIC)
     Route: 065
  32. METHOTREXATE [Suspect]
     Active Substance: METHOTREXATE
     Dosage: 10 MG DAYS 38 AND 45 (CYCLIC)
     Route: 065
  33. METHOTREXATE [Suspect]
     Active Substance: METHOTREXATE
     Dosage: 10 MG DAYS 8, 22, 36 AND 50 (DURING HIGH-DOSE-MTX INFUSION) CYCLIC
     Route: 065
  34. METHOTREXATE [Suspect]
     Active Substance: METHOTREXATE
     Dosage: 12 MG I.TH
     Route: 065
  35. METHOTREXATE [Suspect]
     Active Substance: METHOTREXATE
     Dosage: 12 MG I.TH. (DAY 1 AND 6 OF WEEK 1, DAY 5 OF WEEK 3 (DIRECTLY BEFORE OR UNTIL 1 HOUR AFTER START OF
     Route: 065
  36. METHOTREXATE [Suspect]
     Active Substance: METHOTREXATE
     Dosage: 1 G/M2 DAY 1 OF WEEK 1
     Route: 065
  37. METHOTREXATE [Suspect]
     Active Substance: METHOTREXATE
     Dosage: 1 G/M2 I.V. OVER 36 HOURS STARTING, DAY 1 OF WEEK 13, 19 AND 25
     Route: 065
  38. METHOTREXATE [Suspect]
     Active Substance: METHOTREXATE
     Dosage: 12 MG DAY 1 OF WEEK 13, 19 AND 25 (DIRECTLY BEFORE OR UNTIL 1 HOUR AFTER START OF THE METHOTREXATE I
     Route: 065
  39. METHOTREXATE [Suspect]
     Active Substance: METHOTREXATE
     Dosage: 12 MG DAY 1 OF WEEK 5-7
     Route: 065
  40. METHOTREXATE [Suspect]
     Active Substance: METHOTREXATE
     Dosage: 12 MG DAY 3 OF WEEK 9-10
     Route: 065
  41. METHOTREXATE [Suspect]
     Active Substance: METHOTREXATE
     Indication: Leukaemia recurrent
     Dosage: 20 MG/M2 ONCE A WEEK (CYCLIC)
     Route: 048
  42. METHOTREXATE [Suspect]
     Active Substance: METHOTREXATE
     Dosage: 10 MG I.TH (DAY 59) CONSOLIDATION BSHORT
     Route: 065
  43. METHOTREXATE [Suspect]
     Active Substance: METHOTREXATE
     Dosage: 5000 MG/M2 DAYS 8, 22, 36 AND 50 (CYCLIC)
     Route: 065
  44. METHOTREXATE [Suspect]
     Active Substance: METHOTREXATE
     Dosage: 1 G/M2 OVER 36 HOURS STARTING DAY 1 OF WEEK 13, 19 AND 25
     Route: 065
  45. METHOTREXATE [Suspect]
     Active Substance: METHOTREXATE
     Dosage: 10 MG I.TH (DAYS 38 AND 45)PROTOCOL II
     Route: 065
  46. PEGASPARGASE [Suspect]
     Active Substance: PEGASPARGASE
     Indication: Leukaemia recurrent
     Dosage: 1000 IU/M2 DAY 1 OF WEEK 5, DAY 4 OF WEEK 6
     Route: 065
  47. PEGASPARGASE [Suspect]
     Active Substance: PEGASPARGASE
     Dosage: 1000 IU/M2 DAY 1 OF WEEK 5, DAY 4 OF WEEK 6
     Route: 065
  48. PEGASPARGASE [Suspect]
     Active Substance: PEGASPARGASE
     Dosage: 1000 IU/M2 DAY 4 OF WEEK 1, DAY 4 OF WEEK 3
     Route: 065
  49. PEGASPARGASE [Suspect]
     Active Substance: PEGASPARGASE
     Dosage: 1000 IU/M2 I.V., DAY 6 OF WEEK 13, 19 AND 25 (CYCLIC)
     Route: 065
  50. PEGASPARGASE [Suspect]
     Active Substance: PEGASPARGASE
     Indication: Acute lymphocytic leukaemia
     Dosage: 2500 IU/M2 DAY 8
     Route: 065
  51. PEGASPARGASE [Suspect]
     Active Substance: PEGASPARGASE
     Dosage: 2500 IU/M2/DOSE P.I. (2 H) (DAYS 12 AND 26)INDUCTION PHASE
     Route: 065
  52. PREDNISOLONE [Suspect]
     Active Substance: PREDNISOLONE
     Indication: Leukaemia recurrent
     Dosage: 10 MG DAY 1 AND 6 OF WEEK 1, DAY 5 OF WEEK 3 (DIRECTLY BEFORE OR UNTIL 1 HOUR AFTER START OF THE MET
     Route: 065
  53. PREDNISOLONE [Suspect]
     Active Substance: PREDNISOLONE
     Dosage: 10 MG DAY 1 OF WEEK 13, 19 AND 25 (DIRECTLY BEFORE OR UNTIL 1 HOUR AFTER START OF THE METHOTREXATE I
     Route: 065
  54. PREDNISOLONE [Suspect]
     Active Substance: PREDNISOLONE
     Indication: Acute lymphocytic leukaemia
     Dosage: 10 MG DAY 1 OF WEEK 5-7 (CYCLIC)
     Route: 065
  55. PREDNISOLONE [Suspect]
     Active Substance: PREDNISOLONE
     Dosage: 10 MG DAY 3 OF WEEK 9-10 (CYCLIC)
     Route: 065
  56. PREDNISONE [Suspect]
     Active Substance: PREDNISONE
     Indication: Leukaemia recurrent
     Dosage: 60 MG/M2/DAY P.O. DIVIDED INTO 3 DOSES PER DAY (DAYS 1-28 (FROM DAY 29, TAPERING OVER 9 DAYS WITH HA
     Route: 065
  57. PREDNISONE [Suspect]
     Active Substance: PREDNISONE
     Indication: Acute lymphocytic leukaemia
  58. THIOGUANINE [Suspect]
     Active Substance: THIOGUANINE
     Indication: Acute lymphocytic leukaemia
     Dosage: 60 MG/M2 DAY 1-7 OF WEEK 9 AND 10 (CYCLIC)
     Route: 048
  59. THIOGUANINE [Suspect]
     Active Substance: THIOGUANINE
     Indication: Leukaemia recurrent
     Dosage: 60 MG/M2, 1X/DAY DAYS 36-49 (CYCLIC)
     Route: 048
  60. VINCRISTINE [Suspect]
     Active Substance: VINCRISTINE
     Indication: Acute lymphocytic leukaemia
     Dosage: 1.5 MG/M2/DOSE DAY 1 AND 6 OF  (CYCLIC)
     Route: 065
  61. VINCRISTINE [Suspect]
     Active Substance: VINCRISTINE
     Dosage: 1.5 MG/M2/DOSE DAY 1 AND 6 OF W (CYCLIC)
     Route: 065
  62. VINCRISTINE [Suspect]
     Active Substance: VINCRISTINE
     Dosage: 1.5 MG/M2/DOSE DAY 1 AND 6 OF WEEK 1, DAY 1 OF WEEK 5-8 (CYCLIC)
     Route: 065
  63. VINCRISTINE [Suspect]
     Active Substance: VINCRISTINE
     Indication: Leukaemia recurrent
     Dosage: 1.5 MG/M2/DOSE DAYS 8, 15, 22, 29 (CYCLIC)
     Route: 042
  64. VINCRISTINE [Suspect]
     Active Substance: VINCRISTINE
     Dosage: 1,5 MG/M2/DOSE I.V. (DAY 1 OF WEEK 5-8)
     Route: 042

REACTIONS (2)
  - Fournier^s gangrene [Recovered/Resolved]
  - Neutropenia [Unknown]
